FAERS Safety Report 25279146 (Version 1)
Quarter: 2025Q2

REPORT INFORMATION
  Report Type: Spontaneous
  Country: RO (occurrence: RO)
  Receive Date: 20250507
  Receipt Date: 20250507
  Transmission Date: 20250717
  Serious: Yes (Hospitalization, Other)
  Sender: SANDOZ
  Company Number: RO-SANDOZ-SDZ2025RO027626

PATIENT
  Age: 58 Year
  Sex: Female

DRUGS (9)
  1. TACROLIMUS [Suspect]
     Active Substance: TACROLIMUS
     Indication: Renal transplant
     Dosage: 0.2 MG/KG, QD (ADJUSTED TO MAINTAIN A BLOOD CONCENTRATION OF 10-15 NG/ML)
     Route: 065
  2. TACROLIMUS [Suspect]
     Active Substance: TACROLIMUS
     Route: 065
  3. FUROSEMIDE [Concomitant]
     Active Substance: FUROSEMIDE
     Indication: Hypertension
     Route: 065
  4. RILMENIDINE [Concomitant]
     Active Substance: RILMENIDINE
     Indication: Blood pressure abnormal
     Route: 065
  5. RILMENIDINE [Concomitant]
     Active Substance: RILMENIDINE
     Indication: Acidosis
  6. RILMENIDINE [Concomitant]
     Active Substance: RILMENIDINE
     Indication: Hyperkalaemia
  7. SODIUM BICARBONATE [Concomitant]
     Active Substance: SODIUM BICARBONATE
     Indication: Blood pressure abnormal
     Route: 065
  8. SODIUM BICARBONATE [Concomitant]
     Active Substance: SODIUM BICARBONATE
     Indication: Acidosis
  9. SODIUM BICARBONATE [Concomitant]
     Active Substance: SODIUM BICARBONATE
     Indication: Hyperkalaemia

REACTIONS (5)
  - Pseudohypoaldosteronism [Recovering/Resolving]
  - Delayed graft function [Recovering/Resolving]
  - Drug level increased [Unknown]
  - Nephropathy toxic [Recovering/Resolving]
  - Overdose [Unknown]
